FAERS Safety Report 23665266 (Version 3)
Quarter: 2024Q2

REPORT INFORMATION
  Report Type: Spontaneous
  Country: US (occurrence: US)
  Receive Date: 20240322
  Receipt Date: 20240424
  Transmission Date: 20240715
  Serious: No
  Sender: FDA-Public Use
  Company Number: US-Blueprint Medicines Corporation-2812

PATIENT
  Sex: Female

DRUGS (1)
  1. AYVAKIT [Suspect]
     Active Substance: AVAPRITINIB
     Indication: Systemic mastocytosis
     Route: 065
     Dates: start: 20240201

REACTIONS (11)
  - Dysphonia [Not Recovered/Not Resolved]
  - Dry skin [Unknown]
  - Dermatitis acneiform [Unknown]
  - Pigmentation disorder [Unknown]
  - Platelet count decreased [Unknown]
  - Platelet count abnormal [Unknown]
  - Vulvovaginal pruritus [Unknown]
  - Pruritus [Unknown]
  - Rash [Unknown]
  - Dandruff [Unknown]
  - Scab [Unknown]
